FAERS Safety Report 5834910-5 (Version None)
Quarter: 2008Q3

REPORT INFORMATION
  Report Type: 
  Country: None (occurrence: None)
  Receive Date: 20080804
  Receipt Date: 20080725
  Transmission Date: 20090109
  Serious: Yes (Death, Hospitalization)
  Sender: FDA-Public Use
  Company Number: 2006-146758-NL

PATIENT
  Age: 37 Year
  Sex: Female

DRUGS (2)
  1. FOLLITROPIN BETA [Suspect]
     Indication: IN VITRO FERTILISATION
     Dosage: DF
  2. CHORIONIC GONADTROPIN [Suspect]
     Indication: IN VITRO FERTILISATION
     Dosage: DF

REACTIONS (4)
  - DEEP VEIN THROMBOSIS [None]
  - HAEMORRHAGE [None]
  - PULMONARY EMBOLISM [None]
  - RENAL DISORDER [None]
